FAERS Safety Report 13617000 (Version 1)
Quarter: 2017Q2

REPORT INFORMATION
  Report Type: Spontaneous
  Country: US (occurrence: US)
  Receive Date: 20170606
  Receipt Date: 20170606
  Transmission Date: 20170830
  Serious: No
  Sender: FDA-Public Use
  Company Number: US-SA-2016SA142919

PATIENT
  Age: 53 Year
  Sex: Male

DRUGS (6)
  1. SOLOSTAR [Concomitant]
     Active Substance: DEVICE
     Dates: start: 201608
  2. LANTUS SOLOSTAR [Suspect]
     Active Substance: INSULIN GLARGINE
     Indication: DIABETES MELLITUS
     Dosage: DOSE:30 UNIT(S)
     Route: 065
     Dates: start: 201608
  3. METFORMIN [Concomitant]
     Active Substance: METFORMIN HYDROCHLORIDE
  4. LANTUS SOLOSTAR [Suspect]
     Active Substance: INSULIN GLARGINE
     Indication: DIABETES MELLITUS
     Dosage: INSTRUCTIONS TO INCREASE HIS DOSE BY 3 UNITS EVERY DAY DOSE:39 UNIT(S)
     Route: 065
     Dates: start: 201607
  5. GLYBURIDE. [Concomitant]
     Active Substance: GLYBURIDE
  6. LANTUS SOLOSTAR [Suspect]
     Active Substance: INSULIN GLARGINE
     Indication: DIABETES MELLITUS
     Dosage: DOSE:30 UNIT(S)
     Route: 065
     Dates: start: 201607

REACTIONS (8)
  - Pain [Unknown]
  - Blood glucose increased [Unknown]
  - Somnolence [Unknown]
  - Hunger [Unknown]
  - Injection site pain [Unknown]
  - Weight increased [Unknown]
  - Lethargy [Unknown]
  - Off label use [Unknown]

NARRATIVE: CASE EVENT DATE: 201607
